FAERS Safety Report 18640074 (Version 1)
Quarter: 2020Q4

REPORT INFORMATION
  Report Type: Spontaneous
  Country: LT (occurrence: LT)
  Receive Date: 20201220
  Receipt Date: 20201220
  Transmission Date: 20210114
  Serious: Yes (Other)
  Sender: FDA-Public Use
  Company Number: LT-TEVA-2020-LT-1858621

PATIENT
  Sex: Female

DRUGS (1)
  1. ATORVASTATIN TEVA 20 MG [Suspect]
     Active Substance: ATORVASTATIN
     Indication: BLOOD CHOLESTEROL INCREASED
     Dosage: UNKNOWN
     Route: 048

REACTIONS (9)
  - Abdominal pain [Unknown]
  - Diabetes mellitus [Unknown]
  - Skin burning sensation [Unknown]
  - Body temperature increased [Recovered/Resolved]
  - Muscular weakness [Unknown]
  - Decreased appetite [Unknown]
  - Dizziness [Unknown]
  - Hypersensitivity [Unknown]
  - Tinnitus [Unknown]
